FAERS Safety Report 13891096 (Version 1)
Quarter: 2017Q3

REPORT INFORMATION
  Report Type: Spontaneous
  Country: CN (occurrence: CN)
  Receive Date: 20170822
  Receipt Date: 20170822
  Transmission Date: 20171127
  Serious: Yes (Hospitalization, Other)
  Sender: FDA-Public Use
  Company Number: CN-ACCORD-057407

PATIENT
  Age: 16 Year
  Sex: Male

DRUGS (1)
  1. QUETIAPINE. [Suspect]
     Active Substance: QUETIAPINE
     Indication: BIPOLAR II DISORDER
     Dosage: PER NIGHT
     Route: 048

REACTIONS (3)
  - Syncope [Recovered/Resolved]
  - Contraindicated product administered [Unknown]
  - Hypotension [Recovered/Resolved]
